FAERS Safety Report 13024167 (Version 2)
Quarter: 2016Q4

REPORT INFORMATION
  Report Type: Spontaneous
  Country: FR (occurrence: FR)
  Receive Date: 20161213
  Receipt Date: 20161230
  Transmission Date: 20170207
  Serious: Yes (Hospitalization, Other)
  Sender: FDA-Public Use
  Company Number: FR-ABBVIE-16K-056-1800609-00

PATIENT
  Age: 40 Year
  Sex: Male

DRUGS (4)
  1. METOJECT [Concomitant]
     Active Substance: METHOTREXATE SODIUM
     Indication: PSORIATIC ARTHROPATHY
     Route: 058
     Dates: start: 201311
  2. HUMIRA [Suspect]
     Active Substance: ADALIMUMAB
     Indication: PSORIATIC ARTHROPATHY
     Route: 058
     Dates: start: 201605, end: 20161026
  3. CORTANCYL [Concomitant]
     Active Substance: PREDNISONE
     Indication: PRODUCT USED FOR UNKNOWN INDICATION
     Dates: start: 2013
  4. CORTANCYL [Concomitant]
     Active Substance: PREDNISONE

REACTIONS (12)
  - Eczema [Recovering/Resolving]
  - Psoriasis [Recovering/Resolving]
  - Staphylococcal skin infection [Unknown]
  - Arthritis [Unknown]
  - Oropharyngeal pain [Unknown]
  - Arthritis [Unknown]
  - Joint warmth [Unknown]
  - Folliculitis [Unknown]
  - Rash pustular [Unknown]
  - Hepatitis [Recovering/Resolving]
  - Drug effect incomplete [Unknown]
  - Dermatitis acneiform [Unknown]

NARRATIVE: CASE EVENT DATE: 2016
